FAERS Safety Report 5883190-3 (Version None)
Quarter: 2008Q3

REPORT INFORMATION
  Report Type: 
  Country: None (occurrence: None)
  Receive Date: 20080915
  Receipt Date: 20080904
  Transmission Date: 20090109
  Serious: Yes (Hospitalization, Other)
  Sender: FDA-Public Use
  Company Number: PHHO2008MY02787

PATIENT
  Sex: Female
  Weight: 89 kg

DRUGS (3)
  1. TASIGNA [Suspect]
     Indication: CHRONIC MYELOID LEUKAEMIA
     Dosage: 400 MG, BID
     Route: 048
     Dates: start: 20080115, end: 20080227
  2. TASIGNA [Suspect]
     Dosage: 400 MG, OD
     Route: 048
     Dates: start: 20080408
  3. INSULIN [Concomitant]
     Indication: DIABETES MELLITUS

REACTIONS (7)
  - APHTHOUS STOMATITIS [None]
  - LIP PAIN [None]
  - MOUTH ULCERATION [None]
  - NEUTROPENIA [None]
  - ORAL DISCHARGE [None]
  - THROMBOCYTOPENIA [None]
  - UPPER RESPIRATORY TRACT INFECTION [None]
